FAERS Safety Report 20041569 (Version 1)
Quarter: 2021Q4

REPORT INFORMATION
  Report Type: Spontaneous
  Country: JP (occurrence: JP)
  Receive Date: 20211108
  Receipt Date: 20211108
  Transmission Date: 20220303
  Serious: Yes (Hospitalization, Other)
  Sender: FDA-Public Use
  Company Number: JP-NOVARTISPH-NVSJ2021JP016226

PATIENT
  Age: 87 Year
  Sex: Male
  Weight: 54 kg

DRUGS (7)
  1. ENTRESTO [Suspect]
     Active Substance: SACUBITRIL\VALSARTAN
     Indication: Cardiac failure chronic
     Dosage: 50 MG, BID
     Route: 048
     Dates: start: 20210902, end: 20210925
  2. CARVEDILOL [Concomitant]
     Active Substance: CARVEDILOL
     Indication: Cardiac failure chronic
     Dosage: 10 MG, QD
     Route: 048
     Dates: start: 199507
  3. ADALAT [Concomitant]
     Active Substance: NIFEDIPINE
     Indication: Hypertension
     Dosage: 10 MG, BID
     Route: 048
     Dates: start: 199507
  4. DAPAGLIFLOZIN [Concomitant]
     Active Substance: DAPAGLIFLOZIN
     Indication: Cardiac failure chronic
     Dosage: 5 MG, QD
     Route: 048
     Dates: start: 20210819
  5. ASPIRIN [Interacting]
     Active Substance: ASPIRIN
     Indication: Myocardial infarction
     Dosage: 100 MG, QD
     Route: 048
     Dates: start: 199507
  6. PREDONINE [Concomitant]
     Active Substance: PREDNISOLONE
     Indication: Organising pneumonia
     Dosage: 30 MG, QD
     Route: 048
     Dates: start: 20150629
  7. PREDONINE [Concomitant]
     Active Substance: PREDNISOLONE
     Dosage: 7 MG
     Route: 048

REACTIONS (14)
  - Cardiac failure chronic [Recovered/Resolved]
  - Pollakiuria [Unknown]
  - Urinary retention [Unknown]
  - Pallor [Unknown]
  - Oedema peripheral [Unknown]
  - Face oedema [Unknown]
  - Pulmonary congestion [Unknown]
  - Brain natriuretic peptide increased [Unknown]
  - Organising pneumonia [Recovered/Resolved]
  - Chest discomfort [Unknown]
  - Malaise [Unknown]
  - Insomnia [Unknown]
  - Lung opacity [Unknown]
  - Concomitant disease aggravated [Recovered/Resolved]

NARRATIVE: CASE EVENT DATE: 20210924
